FAERS Safety Report 8724981 (Version 2)
Quarter: 2012Q4

REPORT INFORMATION
  Report Type: Report from Study
  Country: IN (occurrence: IN)
  Receive Date: 20120815
  Receipt Date: 20120927
  Transmission Date: 20130627
  Serious: Yes (Hospitalization)
  Sender: FDA-Public Use
  Company Number: IN-ROCHE-1101196

PATIENT
  Age: 33 Year
  Sex: Female

DRUGS (6)
  1. CELLCEPT [Suspect]
     Indication: RENAL TRANSPLANT
     Dosage: restarted
     Route: 065
     Dates: start: 20120731
  2. CYCLOSPORINE [Suspect]
     Indication: RENAL TRANSPLANT
     Route: 048
     Dates: start: 20070526
  3. PREDNISOLONE [Suspect]
     Indication: RENAL TRANSPLANT
     Route: 065
  4. FEBUXOSTAT [Suspect]
     Indication: PRODUCT USED FOR UNKNOWN INDICATION
  5. FOLVITE [Concomitant]
  6. PANTOLOC [Concomitant]

REACTIONS (1)
  - Pancytopenia [Recovered/Resolved]
